FAERS Safety Report 12299008 (Version 1)
Quarter: 2016Q2

REPORT INFORMATION
  Report Type: Spontaneous
  Country: US (occurrence: None)
  Receive Date: 20160422
  Receipt Date: 20160422
  Transmission Date: 20160815
  Serious: Yes (Disabling)
  Sender: FDA-Public Use
  Company Number: None

PATIENT
  Age: 63 Year
  Sex: Female
  Weight: 95.26 kg

DRUGS (12)
  1. FLUCASONE [Concomitant]
  2. MAGNESEUM [Concomitant]
  3. CPAP [Concomitant]
     Active Substance: DEVICE
  4. GLUCOSIMINE CEAM [Concomitant]
  5. MULTI VITAMIN [Concomitant]
     Active Substance: VITAMINS
  6. HAIR SKIN AND NAILS SUPPLEMENT [Concomitant]
  7. CALCIUM [Concomitant]
     Active Substance: CALCIUM
  8. ALIEVE [Concomitant]
  9. BUPROPION XL 300MG TAB 24 HR, 300 MG [Suspect]
     Active Substance: BUPROPION
     Indication: DEPRESSION
     Dosage: 90 TABLET (S) IN THE MORNING TAKEN BY MOUTH
     Route: 048
     Dates: start: 20151003, end: 20160315
  10. BIOFREEZE [Concomitant]
     Active Substance: MENTHOL
  11. PRO AIR INHALER [Concomitant]
  12. BUPROPION XL 300MG TAB 24 HR, 300 MG [Suspect]
     Active Substance: BUPROPION
     Indication: BIPOLAR DISORDER
     Dosage: 90 TABLET (S) IN THE MORNING TAKEN BY MOUTH
     Route: 048
     Dates: start: 20151003, end: 20160315

REACTIONS (6)
  - Exercise lack of [None]
  - Pain in extremity [None]
  - Musculoskeletal stiffness [None]
  - Arthralgia [None]
  - Activities of daily living impaired [None]
  - Joint swelling [None]

NARRATIVE: CASE EVENT DATE: 20151217
